FAERS Safety Report 7563371-3 (Version None)
Quarter: 2011Q2

REPORT INFORMATION
  Report Type: 
  Country: None (occurrence: None)
  Receive Date: 20110622
  Receipt Date: 20110614
  Transmission Date: 20111010
  Serious: Yes (Hospitalization)
  Sender: FDA-Public Use
  Company Number: A0931474A

PATIENT

DRUGS (1)
  1. VOTRIENT [Suspect]
     Route: 065
     Dates: start: 20110601

REACTIONS (3)
  - CONFUSIONAL STATE [None]
  - THROMBOTIC THROMBOCYTOPENIC PURPURA [None]
  - DISORIENTATION [None]
